FAERS Safety Report 5824395-7 (Version None)
Quarter: 2008Q3

REPORT INFORMATION
  Report Type: 
  Country: None (occurrence: None)
  Receive Date: 20080728
  Receipt Date: 20080722
  Transmission Date: 20090109
  Serious: Yes (Death)
  Sender: FDA-Public Use
  Company Number: A0732036A

PATIENT
  Age: 65 Year
  Sex: Male
  Weight: 97.7 kg

DRUGS (8)
  1. AVANDIA [Suspect]
     Dosage: 2MG PER DAY
     Route: 048
     Dates: start: 20030101, end: 20070701
  2. GLIPIZIDE [Concomitant]
  3. METFORMIN [Concomitant]
  4. HYDROCHLOROTHIAZIDE [Concomitant]
     Indication: HYPERTENSION
  5. LISINOPRIL [Concomitant]
     Indication: HYPERTENSION
  6. FLUVASTATIN [Concomitant]
  7. SIMVASTATIN [Concomitant]
  8. ASPIRIN [Concomitant]

REACTIONS (1)
  - MYOCARDIAL INFARCTION [None]
